FAERS Safety Report 8919587 (Version 1)
Quarter: 2012Q4

REPORT INFORMATION
  Report Type: 
  Country: US (occurrence: US)
  Receive Date: 20121121
  Receipt Date: 20121121
  Transmission Date: 20130627
  Serious: Yes (Other)
  Sender: FDA-Public Use
  Company Number: US-BAYER-2012-120329

PATIENT
  Age: 58 Year
  Sex: Male

DRUGS (1)
  1. CIPRO [Suspect]
     Indication: PROSTATITIS
     Dosage: 500 mg, BID
     Dates: start: 20120213

REACTIONS (10)
  - Hypersensitivity [None]
  - Skin lesion [None]
  - Urticaria [None]
  - Scar [None]
  - Penile pain [None]
  - Sexual dysfunction [None]
  - Gait disturbance [None]
  - Skin discolouration [None]
  - Depression [None]
  - Anxiety [None]
